FAERS Safety Report 8582922 (Version 5)
Quarter: 2012Q4

REPORT INFORMATION
  Report Type: 
  Country: US (occurrence: US)
  Receive Date: 20120529
  Receipt Date: 20121009
  Transmission Date: 20130627
  Serious: Yes (Other)
  Sender: FDA-Public Use
  Company Number: US-JNJFOC-20120515466

PATIENT
  Age: 40 Year
  Sex: Female
  Weight: 81.19 kg

DRUGS (12)
  1. TYLENOL EXTRA STRENGTH [Concomitant]
     Route: 048
  2. DIFLUCAN [Concomitant]
     Route: 048
     Dates: start: 20110730
  3. PROZAC [Concomitant]
     Route: 048
     Dates: start: 20111201
  4. ALEVE [Concomitant]
     Route: 048
     Dates: end: 20120608
  5. REMICADE [Suspect]
     Indication: CROHN^S DISEASE
     Route: 042
     Dates: start: 20120518
  6. REMICADE [Suspect]
     Indication: CROHN^S DISEASE
     Route: 042
     Dates: start: 2010, end: 20120326
  7. REMICADE [Suspect]
     Indication: CROHN^S DISEASE
     Route: 042
     Dates: start: 2007, end: 2010
  8. AZASAN [Suspect]
     Indication: CROHN^S DISEASE
     Route: 048
     Dates: start: 2007, end: 20120326
  9. PRILOSEC [Concomitant]
     Indication: DYSPEPSIA
     Route: 048
     Dates: start: 2007
  10. CLARITIN [Concomitant]
     Route: 048
  11. STRESSTABS [Concomitant]
     Route: 048
  12. PROBIOTIC [Concomitant]
     Route: 065

REACTIONS (3)
  - Malignant melanoma in situ [Recovering/Resolving]
  - Melanocytic hyperplasia [Unknown]
  - Hyperkeratosis [Recovered/Resolved]
